FAERS Safety Report 24219993 (Version 2)
Quarter: 2024Q3

REPORT INFORMATION
  Report Type: Spontaneous
  Country: US (occurrence: US)
  Receive Date: 20240817
  Receipt Date: 20240926
  Transmission Date: 20241017
  Serious: Yes (Other)
  Sender: UPSHER SMITH LABORATORIES
  Company Number: US-UPSHER-SMITH LABORATORIES, LLC-2024USL00128

PATIENT
  Age: 0 Year
  Sex: Male
  Weight: 9.42 kg

DRUGS (7)
  1. VIGADRONE [Suspect]
     Active Substance: VIGABATRIN
     Indication: Infantile spasms
     Dosage: INITIAL DOSE OF 50 MG/KG/DAY WITH TITRATION UP TO MAINTENANCE 150 MG/KG/DAY
     Route: 048
     Dates: start: 20240120, end: 20240126
  2. VIGADRONE [Suspect]
     Active Substance: VIGABATRIN
     Dosage: 550 MG (11 ML) BY MOUTH TWICE DAILY AS DIRECTED
     Route: 048
     Dates: start: 20240126, end: 202402
  3. VIGADRONE [Suspect]
     Active Substance: VIGABATRIN
     Dosage: DOSE INCREASED
     Route: 048
     Dates: start: 202402
  4. VIGADRONE [Suspect]
     Active Substance: VIGABATRIN
     Dosage: ADMINISTER 600 MG (12 ML) BY MOUTH TWICE DAILY AS DIRECTED
     Route: 048
  5. VIGADRONE [Suspect]
     Active Substance: VIGABATRIN
     Dosage: ADMINISTER 600 MG (12 ML) BY MOUTH TWICE DAILY AS DIRECTED
     Route: 048
     Dates: start: 20240801
  6. EPIDIOLEX [Concomitant]
     Active Substance: CANNABIDIOL
     Indication: Product used for unknown indication
     Dosage: 1 MILLILITER, BID
     Route: 065
     Dates: start: 20240808
  7. TOPIRAMATE [Concomitant]
     Active Substance: TOPIRAMATE
     Indication: Product used for unknown indication
     Dosage: 3 MILLILITER, BID
     Route: 065
     Dates: start: 20240611

REACTIONS (5)
  - Partial seizures [Recovering/Resolving]
  - Condition aggravated [Not Recovered/Not Resolved]
  - Product physical consistency issue [Unknown]
  - Insomnia [Recovered/Resolved]
  - Fatigue [Unknown]

NARRATIVE: CASE EVENT DATE: 20240203
